FAERS Safety Report 24713331 (Version 1)
Quarter: 2024Q4

REPORT INFORMATION
  Report Type: Spontaneous
  Country: US (occurrence: US)
  Receive Date: 20241209
  Receipt Date: 20241209
  Transmission Date: 20250114
  Serious: No
  Sender: REGENERON
  Company Number: US-REGENERON PHARMACEUTICALS, INC.-2024-027973

PATIENT
  Sex: Female

DRUGS (3)
  1. EYLEA [Suspect]
     Active Substance: AFLIBERCEPT
     Indication: Neovascular age-related macular degeneration
     Dosage: UNK, ONCE A MONTH INTO LEFT EYE (PATIENT ON TREATMENT FOR BOTH EYES), FORMULATION: UNKNOWN
     Dates: start: 202309
  2. EYLEA [Suspect]
     Active Substance: AFLIBERCEPT
     Dosage: UNK, ONCE A MONTH INTO RIGHT EYE, FORMULATION: UNKNOWN
     Dates: start: 202309
  3. VABYSMO [Concomitant]
     Active Substance: FARICIMAB-SVOA
     Indication: Neovascular age-related macular degeneration
     Dosage: UNK
     Dates: start: 202401

REACTIONS (1)
  - Drug effect less than expected [Unknown]
